FAERS Safety Report 7212322-X (Version None)
Quarter: 2011Q1

REPORT INFORMATION
  Report Type: 
  Country: None (occurrence: None)
  Receive Date: 20110106
  Receipt Date: 20110104
  Transmission Date: 20110831
  Serious: Yes (Death)
  Sender: FDA-Public Use
  Company Number: PHHY2011BR00519

PATIENT
  Sex: Male

DRUGS (2)
  1. DIOVAN AMLO FIX [Suspect]
     Dosage: 160/5 MG
  2. DIOVAN [Suspect]
     Dosage: 160 MG, UNK

REACTIONS (1)
  - DEATH [None]
